FAERS Safety Report 11102337 (Version 2)
Quarter: 2015Q2

REPORT INFORMATION
  Report Type: Spontaneous
  Country: US (occurrence: None)
  Receive Date: 20150507
  Receipt Date: 20150518
  Transmission Date: 20150821
  Serious: Yes (Hospitalization, Other)
  Sender: FDA-Public Use
  Company Number: ADR-2015-00189

PATIENT
  Age: 43 Year
  Sex: Female

DRUGS (2)
  1. SOLU-MEDROL [Suspect]
     Active Substance: METHYLPREDNISOLONE SODIUM SUCCINATE
  2. BACLOFEN INTRATHECAL 500 MCG/ML [Suspect]
     Active Substance: BACLOFEN
     Indication: MUSCLE SPASTICITY

REACTIONS (15)
  - Device inversion [None]
  - Neck pain [None]
  - Drug withdrawal syndrome [None]
  - Device kink [None]
  - Road traffic accident [None]
  - Implant site bruising [None]
  - Condition aggravated [None]
  - Blood pressure increased [None]
  - Back pain [None]
  - Weight decreased [None]
  - Implant site pain [None]
  - Muscle spasticity [None]
  - Dysstasia [None]
  - Device occlusion [None]
  - Impaired driving ability [None]
